FAERS Safety Report 5023091-6 (Version None)
Quarter: 2006Q2

REPORT INFORMATION
  Report Type: 
  Country: None (occurrence: None)
  Receive Date: 20060428
  Receipt Date: 20051111
  Transmission Date: 20061013
  Serious: Yes (Other)
  Sender: FDA-Public Use
  Company Number: 2005154595

PATIENT
  Age: 15 Year
  Sex: Female
  Weight: 86.1834 kg

DRUGS (1)
  1. BENADRYL [Suspect]
     Dosage: 12-15 ONCE, ORAL
     Route: 048
     Dates: start: 20051111, end: 20051111

REACTIONS (3)
  - MEDICATION ERROR [None]
  - OVERDOSE [None]
  - SOMNOLENCE [None]
